FAERS Safety Report 11648388 (Version 1)
Quarter: 2015Q4

REPORT INFORMATION
  Report Type: Spontaneous
  Country: GB (occurrence: GB)
  Receive Date: 20151021
  Receipt Date: 20151021
  Transmission Date: 20160304
  Serious: Yes (Other)
  Sender: FDA-Public Use
  Company Number: GB-TEVA-601280ACC

PATIENT
  Age: 2 Year
  Sex: Male
  Weight: 12 kg

DRUGS (3)
  1. AVEENO [Concomitant]
     Active Substance: DIMETHICONE\HOMOSALATE\OCTINOXATE\OCTISALATE\TITANIUM DIOXIDE
     Dosage: USE AS DIRECTED
     Dates: start: 20150407
  2. SALBUTAMOL [Concomitant]
     Active Substance: ALBUTEROL
     Dosage: 60 DOSAGE FORMS DAILY; REDUCE AS TOLERATED; DAILY DOSE: 60 DOSAGE FORMS
     Route: 055
     Dates: start: 20150924
  3. MONTELUKAST [Suspect]
     Active Substance: MONTELUKAST SODIUM
     Route: 048
     Dates: start: 20150924, end: 20151002

REACTIONS (4)
  - Agitation [Recovered/Resolved]
  - Sleep terror [Unknown]
  - Aggression [Unknown]
  - Abnormal behaviour [Unknown]

NARRATIVE: CASE EVENT DATE: 20151002
